FAERS Safety Report 25009940 (Version 3)
Quarter: 2025Q2

REPORT INFORMATION
  Report Type: Spontaneous
  Country: JP (occurrence: JP)
  Receive Date: 20250225
  Receipt Date: 20250529
  Transmission Date: 20250716
  Serious: Yes (Death, Other)
  Sender: ALEXION PHARMACEUTICALS
  Company Number: JP-ASTRAZENECA-240132872_064320_P_1

PATIENT
  Age: 88 Year

DRUGS (2)
  1. ANDEXXA [Suspect]
     Active Substance: ANDEXANET ALFA
     Indication: Haemorrhage
  2. APIXABAN [Concomitant]
     Active Substance: APIXABAN

REACTIONS (6)
  - Traumatic subarachnoid haemorrhage [Fatal]
  - Acute kidney injury [Fatal]
  - Shock haemorrhagic [Fatal]
  - Face injury [Fatal]
  - Arterial occlusive disease [Unknown]
  - Rhabdomyolysis [Unknown]
